FAERS Safety Report 7630855-9 (Version None)
Quarter: 2011Q3

REPORT INFORMATION
  Report Type: 
  Country: None (occurrence: None)
  Receive Date: 20110723
  Receipt Date: 20110715
  Transmission Date: 20111222
  Serious: Yes (Hospitalization)
  Sender: FDA-Public Use
  Company Number: DE-ABBOTT-11P-062-0839313-00

PATIENT
  Age: 64 Year
  Sex: Female
  Weight: 73 kg

DRUGS (6)
  1. HUMIRA [Suspect]
     Dates: start: 20110601
  2. GLUCOCORTICOIDS [Concomitant]
     Indication: PRODUCT USED FOR UNKNOWN INDICATION
  3. TOCILIZUMAB [Concomitant]
     Indication: PRODUCT USED FOR UNKNOWN INDICATION
     Dates: start: 20091201, end: 20110301
  4. CORDINATE PLUS [Concomitant]
     Indication: HYPERTENSION
  5. HUMIRA [Suspect]
     Indication: RHEUMATOID ARTHRITIS
     Dates: start: 20110412, end: 20110515
  6. PRAVASTIN [Concomitant]
     Indication: HYPERLIPIDAEMIA

REACTIONS (1)
  - RECTAL POLYP [None]
